FAERS Safety Report 26147057 (Version 2)
Quarter: 2025Q4

REPORT INFORMATION
  Report Type: Spontaneous
  Country: EU (occurrence: EU)
  Receive Date: 20251211
  Receipt Date: 20251223
  Transmission Date: 20260117
  Serious: Yes (Other)
  Sender: PFIZER
  Company Number: EU-MLMSERVICE-20251128-PI730672-00218-1

PATIENT
  Age: 76 Year
  Sex: Male

DRUGS (3)
  1. METHOTREXATE SODIUM [Suspect]
     Active Substance: METHOTREXATE SODIUM
     Indication: Ocular lymphoma
     Dosage: 0.4 MG, 2X/WEEK; INTRAVITREAL
  2. METHOTREXATE SODIUM [Suspect]
     Active Substance: METHOTREXATE SODIUM
     Indication: Metastases to central nervous system
     Dosage: 0.4 MG, WEEKLY; INTRAVITREAL
  3. METHOTREXATE SODIUM [Suspect]
     Active Substance: METHOTREXATE SODIUM
     Dosage: 0.4 MG, MONTHLY; INTRAVITREAL

REACTIONS (3)
  - Cystoid macular oedema [Recovered/Resolved]
  - Corneal epitheliopathy [Recovering/Resolving]
  - Off label use [Unknown]
